FAERS Safety Report 18277607 (Version 1)
Quarter: 2020Q3

REPORT INFORMATION
  Report Type: Spontaneous
  Country: GB (occurrence: GB)
  Receive Date: 20200917
  Receipt Date: 20200917
  Transmission Date: 20201103
  Serious: Yes (Hospitalization, Other)
  Sender: FDA-Public Use
  Company Number: GB-TEVA-2020-GB-1827190

PATIENT
  Age: 57 Year
  Sex: Female
  Weight: 79.5 kg

DRUGS (23)
  1. CLOZARIL [Suspect]
     Active Substance: CLOZAPINE
     Dosage: 200 MG, BID, UNIT DOSE : 400 MG, THERAPY START DATE : ASKU
     Route: 048
     Dates: start: 2020
  2. BECLOMETASONE [Concomitant]
     Active Substance: BECLOMETHASONE DIPROPIONATE
     Indication: ASTHMA
     Dosage: 4 DOSAGE FORMS DAILY; 2 PUFFS, BID, INHALER
     Route: 048
     Dates: end: 20200628
  3. AMLODIPINE [Suspect]
     Active Substance: AMLODIPINE BESYLATE
     Dosage: 5 MILLIGRAM DAILY; THERAPY START DATE: ASKED BUT UNKNOWN,
     Route: 048
     Dates: end: 20200628
  4. LANSOPRAZOLE. [Suspect]
     Active Substance: LANSOPRAZOLE
     Indication: PROPHYLAXIS AGAINST GASTROINTESTINAL ULCER
     Dosage: 15 MILLIGRAM DAILY;  THERAPY START DATE: ASKU
     Route: 048
     Dates: end: 20200628
  5. CLOZARIL [Suspect]
     Active Substance: CLOZAPINE
     Indication: SCHIZOPHRENIA
     Dosage: 300 MG, BID, UNIT DOSE: 600 MG
     Route: 048
     Dates: start: 20050118, end: 20200628
  6. SALBUTAMOL [Concomitant]
     Active Substance: ALBUTEROL
     Indication: CHRONIC OBSTRUCTIVE PULMONARY DISEASE
  7. LANSOPRAZOLE. [Suspect]
     Active Substance: LANSOPRAZOLE
     Dosage: 105 MG
     Route: 048
     Dates: start: 20200628, end: 20200628
  8. MIRTAZAPINE. [Suspect]
     Active Substance: MIRTAZAPINE
     Indication: DEPRESSION
     Dosage: 45 MILLIGRAM DAILY; THERAPY START DATE: ASKU
     Route: 048
     Dates: end: 20200628
  9. NAPROXEN. [Suspect]
     Active Substance: NAPROXEN
     Indication: SCIATICA
     Dosage: 21 G
     Route: 048
     Dates: start: 20200628, end: 20200628
  10. NAPROXEN. [Suspect]
     Active Substance: NAPROXEN
     Indication: ARTHRITIS
  11. CLOZARIL [Suspect]
     Active Substance: CLOZAPINE
     Dosage: 4.2 GRAM DAILY; THERAPY START DATE : ASKU
     Route: 048
     Dates: start: 20200628
  12. N ACETYL L CYSTEIN [Concomitant]
     Active Substance: ACETYLCYSTEINE
     Indication: PRODUCT USED FOR UNKNOWN INDICATION
     Dosage: UNK
     Route: 065
  13. BECLOMETASONE [Concomitant]
     Active Substance: BECLOMETHASONE DIPROPIONATE
     Indication: CHRONIC OBSTRUCTIVE PULMONARY DISEASE
  14. ADCAL D3 [Concomitant]
     Active Substance: CALCIUM CARBONATE\CHOLECALCIFEROL
     Indication: SUPPLEMENTATION THERAPY
     Dosage: 2 DOSAGE FORM, BID, 750MG/100 UNITS, UNIT DOSE : 4DF
     Route: 048
     Dates: end: 20200628
  15. SALBUTAMOL [Concomitant]
     Active Substance: ALBUTEROL
     Indication: ASTHMA
     Dosage: 1?2 PUFFS QDS/ PRN, INHALER
     Route: 048
     Dates: end: 20200628
  16. MIRTAZAPINE. [Suspect]
     Active Substance: MIRTAZAPINE
     Dosage: 315 MG
     Route: 048
     Dates: start: 20200628, end: 20200628
  17. NAPROXEN. [Suspect]
     Active Substance: NAPROXEN
     Indication: PAIN
     Dosage: 500 MG, BID, UNIT DOSE: 1000 MG, THERAPY START DATE : ASKU
     Route: 048
     Dates: end: 20200628
  18. PARACETAMOL [Suspect]
     Active Substance: ACETAMINOPHEN
     Indication: SCIATICA
     Dosage: 500 MG TO 1 GRAM, QDS, PRN, THERAPY START DATE: ASKU
     Route: 048
     Dates: end: 20200628
  19. HYALURONATE SODIUM [Concomitant]
     Active Substance: HYALURONATE SODIUM
     Indication: DRY SKIN
     Dosage: UNK (ASD)
     Route: 061
     Dates: end: 20200628
  20. AMLODIPINE [Suspect]
     Active Substance: AMLODIPINE BESYLATE
     Indication: HYPERTENSION
     Dosage: 70 MG
     Route: 048
     Dates: start: 20200628, end: 20200628
  21. PARACETAMOL [Suspect]
     Active Substance: ACETAMINOPHEN
     Indication: ARTHRITIS
     Dosage: 15 G
     Route: 048
     Dates: start: 20200628, end: 20200628
  22. PARACETAMOL [Suspect]
     Active Substance: ACETAMINOPHEN
     Indication: PAIN
  23. AQUADERM [Concomitant]
     Indication: DRY SKIN
     Dosage: ASD, ASD
     Route: 061
     Dates: end: 20200628

REACTIONS (3)
  - Overdose [Recovering/Resolving]
  - Haemorrhage [Unknown]
  - Sinus tachycardia [Unknown]

NARRATIVE: CASE EVENT DATE: 2020
